FAERS Safety Report 4897335-5 (Version None)
Quarter: 2005Q4

REPORT INFORMATION
  Report Type: 
  Country: None (occurrence: None)
  Receive Date: 20051223
  Receipt Date: 20051013
  Transmission Date: 20060501
  Serious: No
  Sender: FDA-Public Use
  Company Number: 05P-163-0313724-00

PATIENT
  Age: 75 Year
  Sex: Female
  Weight: 55.3388 kg

DRUGS (7)
  1. HUMIRA [Suspect]
     Indication: RHEUMATOID ARTHRITIS
     Dosage: 40 MG, 1 IN 2 WK, SUBCUTANEOUS
     Route: 058
     Dates: start: 20050915
  2. ENALAPRIL [Concomitant]
  3. METOPROLOL [Concomitant]
  4. GLIBOMET [Concomitant]
  5. PREDNISONE [Concomitant]
  6. LEFLUNOMIDE [Concomitant]
  7. CALCITONIN-SALMON [Concomitant]

REACTIONS (1)
  - INJECTION SITE PAIN [None]
